FAERS Safety Report 4572456-5 (Version None)
Quarter: 2005Q1

REPORT INFORMATION
  Report Type: 
  Country: None (occurrence: None)
  Receive Date: 20050207
  Receipt Date: 20041217
  Transmission Date: 20050727
  Serious: Yes (Other)
  Sender: FDA-Public Use
  Company Number: FR-NOVOPROD-241215

PATIENT
  Age: 56 Year
  Sex: Male
  Weight: 95 kg

DRUGS (4)
  1. NORDITROPIN SIMPLEXX [Suspect]
     Indication: GROWTH HORMONE DEFICIENCY
     Dosage: .4 MG, QD
     Route: 058
     Dates: start: 20001109
  2. ANDROTARDYL [Concomitant]
     Indication: HYPOPITUITARISM
     Dosage: 12 MG, QD
     Route: 030
     Dates: start: 19880329
  3. HYDROCORTISONE [Concomitant]
     Indication: HYPOPITUITARISM
     Dosage: 30 MG, QD
     Route: 048
     Dates: start: 19880329
  4. LEVOTHYROXINE [Concomitant]
     Indication: HYPOPITUITARISM
     Dosage: 150 UG, QD
     Route: 048
     Dates: start: 19880329

REACTIONS (1)
  - MENINGITIS VIRAL [None]
